FAERS Safety Report 19129663 (Version 1)
Quarter: 2021Q2

REPORT INFORMATION
  Report Type: Spontaneous
  Country: US (occurrence: US)
  Receive Date: 20210413
  Receipt Date: 20210413
  Transmission Date: 20210717
  Serious: No
  Sender: FDA-Public Use
  Company Number: US-TOPROL-202000079

PATIENT
  Age: 63 Year
  Sex: Male
  Weight: 90.7 kg

DRUGS (1)
  1. GENERIC METOPROLOL [Suspect]
     Active Substance: METOPROLOL
     Route: 065

REACTIONS (4)
  - Drug ineffective [Unknown]
  - Product substitution issue [Unknown]
  - Off label use [Unknown]
  - Blood pressure abnormal [Unknown]
